FAERS Safety Report 9274640 (Version 1)
Quarter: 2013Q2

REPORT INFORMATION
  Report Type: Spontaneous
  Country: US (occurrence: None)
  Receive Date: 20130430
  Receipt Date: 20130430
  Transmission Date: 20140414
  Serious: Yes (Hospitalization)
  Sender: FDA-Public Use
  Company Number: None

PATIENT
  Age: 58 Year
  Sex: Male
  Weight: 95 kg

DRUGS (13)
  1. CISPLATIN [Suspect]
     Dates: end: 20130415
  2. DOCETAXEL (TAXOTERE) [Suspect]
     Dates: end: 20130415
  3. ALBUTEROL [Concomitant]
  4. ATENOLOL [Concomitant]
  5. CYMBALTA [Concomitant]
  6. GABAPENTIN [Concomitant]
  7. IMITREX [Concomitant]
  8. INDOMETHACIN [Concomitant]
  9. OMEPRAZOLE [Concomitant]
  10. TYLENOL [Concomitant]
  11. TYLENOL WITH CODEINE #3 ACETAMINOPHEN AND CODEINE [Concomitant]
  12. VERAPAMIL HCL [Concomitant]
  13. ZOCOR [Concomitant]

REACTIONS (2)
  - Arthritis bacterial [None]
  - Staphylococcal infection [None]
